FAERS Safety Report 25969111 (Version 1)
Quarter: 2025Q4

REPORT INFORMATION
  Report Type: Spontaneous
  Country: EU (occurrence: EU)
  Receive Date: 20251028
  Receipt Date: 20251028
  Transmission Date: 20260117
  Serious: Yes (Hospitalization, Disabling, Other)
  Sender: Haleon PLC
  Company Number: EU-002147023-NVSC2025FR128143

PATIENT
  Sex: Female
  Weight: 130 kg

DRUGS (1)
  1. VOLTARENE (DICLOFENAC SODIUM) [Suspect]
     Active Substance: DICLOFENAC SODIUM
     Indication: Osteoarthritis
     Dosage: 75 MG, BID?ROUTE OF ADMINISTRATION: UNKNOWN

REACTIONS (11)
  - Staphylococcal infection [Unknown]
  - Intertrigo [Unknown]
  - Pyrexia [Unknown]
  - Rash erythematous [Unknown]
  - Condition aggravated [Unknown]
  - Necrosis [Unknown]
  - Blister [Unknown]
  - Chills [Unknown]
  - Erysipelas [Unknown]
  - Osteonecrosis [Unknown]
  - Rash vesicular [Unknown]
